FAERS Safety Report 5469923-9 (Version None)
Quarter: 2007Q3

REPORT INFORMATION
  Report Type: 
  Country: None (occurrence: None)
  Receive Date: 20070927
  Receipt Date: 20070919
  Transmission Date: 20080115
  Serious: Yes (Hospitalization)
  Sender: FDA-Public Use
  Company Number: US-ELI_LILLY_AND_COMPANY-US200709003947

PATIENT
  Age: 65 Year
  Sex: Male

DRUGS (6)
  1. HUMALOG MIX 75/25 [Suspect]
     Dosage: 40 U, EACH MORNING
  2. HUMALOG MIX 75/25 [Suspect]
     Dosage: 40 U, EACH EVENING
  3. ASPIRIN [Concomitant]
     Dosage: 81 MG, DAILY (1/D)
  4. CELEBREX [Concomitant]
     Dosage: 200 MG, DAILY (1/D)
  5. LISINOPRIL [Concomitant]
     Dosage: 2.5 MG, DAILY (1/D)
  6. VYTORIN [Concomitant]
     Dosage: UNK MG, DAILY (1/D)

REACTIONS (3)
  - BLOOD GLUCOSE INCREASED [None]
  - CHOLECYSTECTOMY [None]
  - NAUSEA [None]
